FAERS Safety Report 7497482-8 (Version None)
Quarter: 2011Q2

REPORT INFORMATION
  Report Type: 
  Country: None (occurrence: None)
  Receive Date: 20110523
  Receipt Date: 20110510
  Transmission Date: 20111010
  Serious: Yes (Hospitalization, Other)
  Sender: FDA-Public Use
  Company Number: US-ELI_LILLY_AND_COMPANY-US201104002441

PATIENT
  Sex: Female
  Weight: 59.864 kg

DRUGS (8)
  1. LEXAPRO [Concomitant]
     Indication: DEPRESSION
     Dosage: 20 MG, QD
  2. NUCYNTA [Concomitant]
     Indication: BACK PAIN
     Dosage: 100 MG, EVERY 4 HRS
  3. VITAMIN D [Concomitant]
  4. FORTEO [Suspect]
     Indication: OSTEOPOROSIS
     Dosage: 20 UG, QD
     Route: 058
     Dates: start: 20101129
  5. SIMVASTATIN [Concomitant]
     Indication: BLOOD CHOLESTEROL
     Dosage: 20 MG, OTHER
  6. CALCIUM CARBONATE [Concomitant]
  7. FORTEO [Suspect]
     Dosage: 20 UG, QD
     Route: 058
  8. LYRICA [Concomitant]
     Indication: FIBROMYALGIA
     Dosage: 30 MG, OTHER

REACTIONS (9)
  - SPEECH DISORDER [None]
  - FATIGUE [None]
  - CEREBROVASCULAR ACCIDENT [None]
  - MEMORY IMPAIRMENT [None]
  - DEPRESSION [None]
  - JOINT SWELLING [None]
  - PATIENT-DEVICE INCOMPATIBILITY [None]
  - DEHYDRATION [None]
  - INJECTION SITE PAIN [None]
